FAERS Safety Report 20135553 (Version 1)
Quarter: 2021Q4

REPORT INFORMATION
  Report Type: Spontaneous
  Country: CN (occurrence: CN)
  Receive Date: 20211201
  Receipt Date: 20211201
  Transmission Date: 20220303
  Serious: Yes (Hospitalization)
  Sender: FDA-Public Use
  Company Number: CN-CHIESI-2021CHF05857

PATIENT
  Age: 3 Day
  Sex: Male
  Weight: 1.44 kg

DRUGS (7)
  1. PORACTANT ALFA [Suspect]
     Active Substance: PORACTANT ALFA
     Indication: Dyspnoea
     Dosage: 240 MILLIGRAM, BID
     Route: 065
  2. CAFFEINE CITRATE [Suspect]
     Active Substance: CAFFEINE CITRATE
     Indication: Respiratory disorder
     Dosage: UNK
  3. PIPERACILLIN SODIUM\TAZOBACTAM SODIUM [Concomitant]
     Active Substance: PIPERACILLIN SODIUM\TAZOBACTAM SODIUM
     Indication: Infection prophylaxis
     Dosage: UNK
  4. CEFOPERAZONE SODIUM [Concomitant]
     Active Substance: CEFOPERAZONE SODIUM
     Indication: Infection prophylaxis
     Dosage: UNK
  5. SULBACTAM [Concomitant]
     Active Substance: SULBACTAM
     Indication: Infection prophylaxis
     Dosage: UNK
  6. DOPAMINE [Concomitant]
     Active Substance: DOPAMINE HYDROCHLORIDE
     Indication: Cardiovascular disorder
     Dosage: UNK
  7. DOBUTAMINE [Concomitant]
     Active Substance: DOBUTAMINE HYDROCHLORIDE
     Indication: Cardiovascular disorder
     Dosage: UNK

REACTIONS (2)
  - Neonatal pneumothorax [Recovered/Resolved]
  - Pneumoperitoneum [Recovered/Resolved]
